FAERS Safety Report 4345024-8 (Version None)
Quarter: 2004Q2

REPORT INFORMATION
  Report Type: 
  Country: None (occurrence: None)
  Receive Date: 20040420
  Receipt Date: 20040408
  Transmission Date: 20050107
  Serious: Yes (Hospitalization)
  Sender: FDA-Public Use
  Company Number: FRP04000326

PATIENT
  Age: 42 Year
  Sex: Female

DRUGS (1)
  1. ACTONEL [Suspect]
     Indication: FRACTURE
     Dosage: ORAL
     Route: 048
     Dates: start: 20040101, end: 20040101

REACTIONS (4)
  - ANGIONEUROTIC OEDEMA [None]
  - HYPERSENSITIVITY [None]
  - PYREXIA [None]
  - RESPIRATORY DISORDER [None]
